FAERS Safety Report 23357126 (Version 1)
Quarter: 2024Q1

REPORT INFORMATION
  Report Type: Spontaneous
  Country: BR (occurrence: BR)
  Receive Date: 20240102
  Receipt Date: 20240102
  Transmission Date: 20240410
  Serious: Yes (Other)
  Sender: FDA-Public Use
  Company Number: BR-TAKEDA-2024TUS000111

PATIENT
  Sex: Male
  Weight: 62 kg

DRUGS (1)
  1. MESALAMINE [Suspect]
     Active Substance: MESALAMINE
     Indication: Gastritis
     Dosage: 1 DOSAGE FORM, QD
     Route: 048
     Dates: start: 20231208

REACTIONS (3)
  - Hypothyroidism [Unknown]
  - Off label use [Unknown]
  - Product packaging quantity issue [Unknown]
